FAERS Safety Report 15841925 (Version 1)
Quarter: 2019Q1

REPORT INFORMATION
  Report Type: Spontaneous
  Country: US (occurrence: US)
  Receive Date: 20190117
  Receipt Date: 20190117
  Transmission Date: 20190417
  Serious: Yes (Disabling, Other)
  Sender: FDA-Public Use
  Company Number: None

PATIENT
  Age: 58 Year
  Sex: Male
  Weight: 112.05 kg

DRUGS (6)
  1. RESTASIS [Concomitant]
     Active Substance: CYCLOSPORINE
  2. BABY ASPIRIN [Concomitant]
     Active Substance: ASPIRIN
  3. ROSUVOSTATIN [Concomitant]
  4. VITAMIN C [Concomitant]
     Active Substance: ASCORBIC ACID
  5. QVAR REDIHALER [Suspect]
     Active Substance: BECLOMETHASONE DIPROPIONATE
     Indication: ASTHMA
     Dosage: ?          QUANTITY:1 PUFF(S);?
     Route: 055
     Dates: start: 20190103, end: 20190117
  6. BRILINTA [Concomitant]
     Active Substance: TICAGRELOR

REACTIONS (9)
  - Dyspnoea [None]
  - Fatigue [None]
  - Disturbance in attention [None]
  - Sleep disorder [None]
  - Sleep deficit [None]
  - Device malfunction [None]
  - Cough [None]
  - Asthma [None]
  - Drug ineffective [None]

NARRATIVE: CASE EVENT DATE: 20190116
